FAERS Safety Report 13998497 (Version 2)
Quarter: 2017Q4

REPORT INFORMATION
  Report Type: Spontaneous
  Country: US (occurrence: US)
  Receive Date: 20170922
  Receipt Date: 20171024
  Transmission Date: 20180321
  Serious: Yes (Other)
  Sender: FDA-Public Use
  Company Number: US-JNJFOC-20170919075

PATIENT
  Sex: Female

DRUGS (3)
  1. XARELTO [Concomitant]
     Active Substance: RIVAROXABAN
     Indication: CEREBROVASCULAR ACCIDENT
     Route: 065
  2. TRAMADOL HYDROCHLORIDE. [Suspect]
     Active Substance: TRAMADOL HYDROCHLORIDE
     Indication: BACK PAIN
     Route: 065
     Dates: start: 1995, end: 2017
  3. ULTRAM [Suspect]
     Active Substance: TRAMADOL HYDROCHLORIDE
     Indication: BACK PAIN
     Route: 065
     Dates: start: 1995, end: 2017

REACTIONS (7)
  - Cerebrovascular accident [Unknown]
  - Drug ineffective [Unknown]
  - Haemorrhoids [Unknown]
  - Arthritis [Unknown]
  - Osteoporosis [Not Recovered/Not Resolved]
  - Constipation [Unknown]
  - Surgery [Unknown]
